FAERS Safety Report 9457856 (Version 1)
Quarter: 2013Q3

REPORT INFORMATION
  Report Type: Spontaneous
  Country: US (occurrence: None)
  Receive Date: 20130809
  Receipt Date: 20130809
  Transmission Date: 20140515
  Serious: Yes (Hospitalization)
  Sender: FDA-Public Use
  Company Number: JPI-P-034112

PATIENT
  Age: 79 Year
  Sex: Male

DRUGS (1)
  1. XYREM [Suspect]
     Indication: NARCOLEPSY
     Dosage: 4.5 GM (2.25 GM, 2 IN 1 D),ORAL
     Route: 048
     Dates: start: 20090601

REACTIONS (6)
  - Arterial therapeutic procedure [None]
  - Restless legs syndrome [None]
  - Abasia [None]
  - Neuropathy peripheral [None]
  - Parkinson^s disease [None]
  - Asthenia [None]
